FAERS Safety Report 10103241 (Version 1)
Quarter: 2014Q2

REPORT INFORMATION
  Report Type: Spontaneous
  Country: US (occurrence: US)
  Receive Date: 20140424
  Receipt Date: 20140424
  Transmission Date: 20141212
  Serious: No
  Sender: FDA-Public Use
  Company Number: US-BRISTOL-MYERS SQUIBB COMPANY-20208641

PATIENT
  Age: 70 Year
  Sex: Male
  Weight: 149.66 kg

DRUGS (10)
  1. ELIQUIS [Suspect]
  2. ETODOLAC [Concomitant]
  3. FUROSEMIDE [Concomitant]
     Dosage: 2 CAPSULES DAILY
  4. DIGOXIN [Concomitant]
  5. PRIMIDONE [Concomitant]
  6. GABAPENTIN [Concomitant]
  7. SIMVASTATIN [Concomitant]
  8. RAMIPRIL [Concomitant]
  9. MULTIVITAMINS [Concomitant]
  10. POTASSIUM GLUCONATE [Concomitant]

REACTIONS (4)
  - Haemorrhage [Recovered/Resolved]
  - Cellulitis [Unknown]
  - Dry skin [Unknown]
  - Arthralgia [Unknown]
